FAERS Safety Report 17012828 (Version 1)
Quarter: 2019Q4

REPORT INFORMATION
  Report Type: Report from Study
  Country: AR (occurrence: AR)
  Receive Date: 20191109
  Receipt Date: 20191109
  Transmission Date: 20200122
  Serious: Yes (Other)
  Sender: FDA-Public Use
  Company Number: NVSC2019AR026421

PATIENT
  Sex: Male

DRUGS (1)
  1. EXFORGE [Suspect]
     Active Substance: AMLODIPINE BESYLATE\VALSARTAN
     Indication: HYPERTROPHIC CARDIOMYOPATHY
     Dosage: 1 DF, QD (5 MG AMLODIPINE, 320 MG VALSARTAN)
     Route: 065

REACTIONS (3)
  - Tonsillar disorder [Unknown]
  - Product use in unapproved indication [Unknown]
  - Apnoea [Unknown]
